APPROVED DRUG PRODUCT: MEMANTINE HYDROCHLORIDE
Active Ingredient: MEMANTINE HYDROCHLORIDE
Strength: 21MG
Dosage Form/Route: CAPSULE, EXTENDED RELEASE;ORAL
Application: A214651 | Product #003 | TE Code: AB
Applicant: AUROBINDO PHARMA LTD
Approved: Aug 9, 2021 | RLD: No | RS: No | Type: RX